FAERS Safety Report 17779602 (Version 1)
Quarter: 2020Q2

REPORT INFORMATION
  Report Type: Spontaneous
  Country: US (occurrence: US)
  Receive Date: 20200514
  Receipt Date: 20200514
  Transmission Date: 20200714
  Serious: No
  Sender: FDA-Public Use
  Company Number: US-GW PHARMA-202005USGW01650

PATIENT

DRUGS (5)
  1. EPIDIOLEX [Suspect]
     Active Substance: CANNABIDIOL
     Indication: SEIZURE
     Dosage: UNK
     Route: 048
  2. CLONAZEPAM. [Concomitant]
     Active Substance: CLONAZEPAM
     Indication: SEIZURE CLUSTER
  3. CLONAZEPAM. [Concomitant]
     Active Substance: CLONAZEPAM
     Indication: PETIT MAL EPILEPSY
     Dosage: UNK
     Route: 065
  4. DIASTAT [DIAZEPAM] [Concomitant]
     Indication: SEIZURE
     Dosage: UNK
     Route: 054
  5. DIASTAT [DIAZEPAM] [Concomitant]
     Dosage: UNK (NO LONGER NEEDS THE FULL DOSE)
     Route: 054

REACTIONS (4)
  - Petit mal epilepsy [Unknown]
  - Pyrexia [Unknown]
  - Generalised tonic-clonic seizure [Unknown]
  - Ill-defined disorder [Unknown]

NARRATIVE: CASE EVENT DATE: 202005
